FAERS Safety Report 8310504 (Version 2)
Quarter: 2013Q1

REPORT INFORMATION
  Report Type: Spontaneous
  Country: US (occurrence: US)
  Receive Date: 20111223
  Receipt Date: 20130204
  Transmission Date: 20140127
  Serious: Yes (Other)
  Sender: FDA-Public Use
  Company Number: US-ROCHE-784478

PATIENT
  Sex: Female
  Weight: 49.94 kg

DRUGS (3)
  1. ACCUTANE [Suspect]
     Indication: PRODUCT USED FOR UNKNOWN INDICATION
     Route: 048
  2. ACCUTANE [Suspect]
     Route: 048
  3. METHYLPHENIDATE [Concomitant]

REACTIONS (5)
  - Colitis ulcerative [Unknown]
  - Inflammatory bowel disease [Unknown]
  - Sacroiliitis [Unknown]
  - Depression [Unknown]
  - Irritable bowel syndrome [Unknown]
